FAERS Safety Report 25045374 (Version 1)
Quarter: 2025Q1

REPORT INFORMATION
  Report Type: Spontaneous
  Country: US (occurrence: None)
  Receive Date: 20250305
  Receipt Date: 20250305
  Transmission Date: 20250408
  Serious: Yes (Disabling)
  Sender: FDA-CTU
  Company Number: None

PATIENT
  Age: 28 Year
  Sex: Male
  Weight: 74.25 kg

DRUGS (1)
  1. CIPROFLOXACIN [Suspect]
     Active Substance: CIPROFLOXACIN
     Indication: Urinary tract infection
     Dates: start: 20250210, end: 20250219

REACTIONS (5)
  - Arthralgia [None]
  - Arthralgia [None]
  - Movement disorder [None]
  - Gait inability [None]
  - Walking aid user [None]

NARRATIVE: CASE EVENT DATE: 20250212
